FAERS Safety Report 11327827 (Version 1)
Quarter: 2015Q3

REPORT INFORMATION
  Report Type: Spontaneous
  Country: US (occurrence: US)
  Receive Date: 20150731
  Receipt Date: 20150731
  Transmission Date: 20151125
  Serious: No
  Sender: FDA-Public Use
  Company Number: US-009507513-1507USA005646

PATIENT
  Sex: Female

DRUGS (3)
  1. FOLLISTIM [Suspect]
     Active Substance: FOLLITROPIN
     Dosage: 25 IU, FOR 4 DAYS
     Dates: start: 20150629, end: 20150702
  2. FOLLISTIM [Suspect]
     Active Substance: FOLLITROPIN
     Dosage: UNK
     Dates: start: 20150708, end: 20150709
  3. FOLLISTIM [Suspect]
     Active Substance: FOLLITROPIN
     Dosage: 50 IU, FOR 5 DAYS
     Dates: start: 20150703, end: 20150707

REACTIONS (3)
  - No adverse event [Unknown]
  - Drug dose omission [Unknown]
  - Product quality issue [Unknown]

NARRATIVE: CASE EVENT DATE: 2015
